FAERS Safety Report 6183995-8 (Version None)
Quarter: 2009Q2

REPORT INFORMATION
  Report Type: 
  Country: None (occurrence: None)
  Receive Date: 20090508
  Receipt Date: 20090407
  Transmission Date: 20091009
  Serious: No
  Sender: FDA-Public Use
  Company Number: US-BAYER-200918018NA

PATIENT
  Sex: Male

DRUGS (1)
  1. CIPRO [Suspect]
     Indication: CELLULITIS
     Route: 042

REACTIONS (4)
  - FEELING COLD [None]
  - HYPERSENSITIVITY [None]
  - NERVOUSNESS [None]
  - VESSEL PUNCTURE SITE PAIN [None]
